FAERS Safety Report 5366280-3 (Version None)
Quarter: 2007Q2

REPORT INFORMATION
  Report Type: 
  Country: None (occurrence: None)
  Receive Date: 20070619
  Receipt Date: 20070619
  Transmission Date: 20071010
  Serious: Yes (Other)
  Sender: FDA-Public Use
  Company Number: None

PATIENT
  Age: 66 Year
  Sex: Female
  Weight: 97.977 kg

DRUGS (2)
  1. UNASYN [Suspect]
     Indication: UROSEPSIS
     Dosage: 3 GM EVERY 6 HOURS IV
     Route: 042
     Dates: start: 20070517, end: 20070518
  2. ... [Suspect]

REACTIONS (1)
  - RASH [None]
